FAERS Safety Report 8085970-5 (Version None)
Quarter: 2012Q1

REPORT INFORMATION
  Report Type: 
  Country: None (occurrence: None)
  Receive Date: 20120128
  Receipt Date: 20110505
  Transmission Date: 20120608
  Serious: No
  Sender: FDA-Public Use
  Company Number: US-ABBOTT-11P-163-0723751-00

PATIENT
  Sex: Female

DRUGS (3)
  1. HUMIRA [Suspect]
     Indication: PSORIASIS
     Dates: start: 20100801, end: 20110101
  2. PRINZIDE [Concomitant]
     Indication: BLOOD PRESSURE INCREASED
     Dosage: 10/12.5MG DAILY
     Route: 048
     Dates: start: 20080101
  3. PRISTIQ [Concomitant]
     Indication: DEPRESSION
     Route: 048
     Dates: start: 20080101

REACTIONS (4)
  - MIGRAINE [None]
  - MYALGIA [None]
  - PSORIASIS [None]
  - ARTHRALGIA [None]
